FAERS Safety Report 14102273 (Version 1)
Quarter: 2017Q4

REPORT INFORMATION
  Report Type: Other
  Country: US (occurrence: US)
  Receive Date: 20171018
  Receipt Date: 20171018
  Transmission Date: 20180321
  Serious: Yes (Other)
  Sender: FDA-Public Use
  Company Number: US-EMD SERONO-8195311

PATIENT
  Age: 51 Year
  Sex: Female

DRUGS (1)
  1. CHORIOGONADOTROPIN ALFA [Suspect]
     Active Substance: CHORIOGONADOTROPIN ALFA
     Indication: WEIGHT DECREASED
     Dosage: PRE FILLED SYRINGE
     Route: 058

REACTIONS (3)
  - Injection site infection [Recovering/Resolving]
  - Off label use [Unknown]
  - Mycobacterium fortuitum infection [Recovering/Resolving]
